FAERS Safety Report 9659830 (Version 3)
Quarter: 2013Q4

REPORT INFORMATION
  Report Type: Report from Study
  Country: FR (occurrence: FR)
  Receive Date: 20131031
  Receipt Date: 20131203
  Transmission Date: 20140711
  Serious: Yes (Hospitalization)
  Sender: FDA-Public Use
  Company Number: FR-B.I. PHARMACEUTICALS,INC./RIDGEFIELD-2013-BI-34076BI

PATIENT
  Age: 66 Year
  Sex: Male
  Weight: 52 kg

DRUGS (8)
  1. ERLOTINIB [Suspect]
     Indication: SQUAMOUS CELL CARCINOMA OF LUNG
     Dosage: 150 MG
     Route: 048
     Dates: start: 20130807, end: 20131001
  2. TRIAL PROCEDURE [Suspect]
     Indication: SQUAMOUS CELL CARCINOMA OF LUNG
  3. SEROPLEX [Concomitant]
     Indication: ANXIETY
     Dosage: 10 MG
     Route: 048
  4. SERESTA [Concomitant]
     Indication: ANXIETY
     Dosage: 10 MG
     Route: 048
  5. DOXYCYCLINE [Concomitant]
     Indication: RASH
     Dosage: 100 MG
     Route: 048
     Dates: start: 20130815
  6. DIPROSONE CREAM [Concomitant]
     Indication: ECZEMA
     Dosage: ALD
     Dates: start: 20130903
  7. DEXERYL [Concomitant]
     Indication: ICHTHYOSIS
     Dosage: ALD
     Dates: start: 20131001
  8. LOCOID CREAM [Concomitant]
     Indication: RASH PAPULAR
     Dates: start: 20131002

REACTIONS (3)
  - Pulmonary embolism [Unknown]
  - Performance status decreased [Unknown]
  - Endocarditis [Unknown]
